FAERS Safety Report 6619349-7 (Version None)
Quarter: 2010Q1

REPORT INFORMATION
  Report Type: 
  Country: None (occurrence: None)
  Receive Date: 20100308
  Receipt Date: 20090303
  Transmission Date: 20100710
  Serious: No
  Sender: FDA-Public Use
  Company Number: US-TYCO HEALTHCARE/MALLINCKRODT-T200900605

PATIENT
  Sex: Male

DRUGS (6)
  1. RESTORIL [Suspect]
     Indication: SLEEP DISORDER
     Dosage: 30 MG, QD (20-30 MINS BEFORE BEDTIME)
     Route: 048
     Dates: start: 20070215
  2. AVELOX                             /01453201/ [Concomitant]
     Indication: COUGH
     Dosage: 400 MG, QD
     Route: 048
  3. ZOCOR [Concomitant]
  4. ALTACE [Concomitant]
  5. GLUCOPHAGE [Concomitant]
  6. CLARITIN                           /00917501/ [Concomitant]

REACTIONS (4)
  - DRUG INEFFECTIVE [None]
  - INCORRECT DOSE ADMINISTERED [None]
  - ROAD TRAFFIC ACCIDENT [None]
  - SOMNAMBULISM [None]
